FAERS Safety Report 8512532-5 (Version None)
Quarter: 2012Q3

REPORT INFORMATION
  Report Type: 
  Country: None (occurrence: None)
  Receive Date: 20120716
  Receipt Date: 20120710
  Transmission Date: 20120928
  Serious: Yes (Life-Threatening, Hospitalization)
  Sender: FDA-Public Use
  Company Number: FI-GLAXOSMITHKLINE-B0814675A

PATIENT
  Sex: Female

DRUGS (1)
  1. ZINACEF [Suspect]
     Indication: PYELONEPHRITIS
     Dosage: 1.5MG SINGLE DOSE
     Route: 042
     Dates: start: 20120621, end: 20120621

REACTIONS (5)
  - URTICARIA [None]
  - CARDIAC ARREST [None]
  - ANAPHYLACTIC SHOCK [None]
  - PULSELESS ELECTRICAL ACTIVITY [None]
  - ERYTHEMA [None]
